FAERS Safety Report 21350453 (Version 1)
Quarter: 2022Q3

REPORT INFORMATION
  Report Type: Spontaneous
  Country: US (occurrence: US)
  Receive Date: 20220919
  Receipt Date: 20220919
  Transmission Date: 20221027
  Serious: No
  Sender: FDA-Public Use
  Company Number: US-LUPIN PHARMACEUTICALS INC.-2022-11165

PATIENT

DRUGS (4)
  1. AZACITIDINE [Suspect]
     Active Substance: AZACITIDINE
     Indication: Atypical teratoid/rhabdoid tumour of CNS
     Dosage: UNK
     Route: 065
  2. CYTARABINE [Concomitant]
     Active Substance: CYTARABINE
     Indication: Atypical teratoid/rhabdoid tumour of CNS
     Dosage: UNK, HIGH-DOSE
     Route: 065
  3. FLUDARABINE [Concomitant]
     Active Substance: FLUDARABINE PHOSPHATE
     Indication: Atypical teratoid/rhabdoid tumour of CNS
     Dosage: UNK
     Route: 065
  4. VENETOCLAX [Concomitant]
     Active Substance: VENETOCLAX
     Indication: Atypical teratoid/rhabdoid tumour of CNS
     Dosage: UNK
     Route: 065

REACTIONS (1)
  - Off label use [Unknown]
